FAERS Safety Report 13766408 (Version 1)
Quarter: 2017Q3

REPORT INFORMATION
  Report Type: Spontaneous
  Country: US (occurrence: US)
  Receive Date: 20170718
  Receipt Date: 20170718
  Transmission Date: 20171127
  Serious: Yes (Other)
  Sender: FDA-Public Use
  Company Number: None

PATIENT
  Age: 83 Year
  Sex: Male
  Weight: 69.75 kg

DRUGS (4)
  1. TAMSULOSIN [Concomitant]
     Active Substance: TAMSULOSIN
  2. TIMOLOL. [Concomitant]
     Active Substance: TIMOLOL
  3. TRAVATAN [Suspect]
     Active Substance: TRAVOPROST
     Dates: start: 20080615, end: 20170616
  4. FINASTERIDE. [Concomitant]
     Active Substance: FINASTERIDE

REACTIONS (1)
  - Precancerous skin lesion [None]

NARRATIVE: CASE EVENT DATE: 20130615
